FAERS Safety Report 14339621 (Version 7)
Quarter: 2018Q2

REPORT INFORMATION
  Report Type: Spontaneous
  Country: PL (occurrence: PL)
  Receive Date: 20171230
  Receipt Date: 20180613
  Transmission Date: 20180711
  Serious: Yes (Life-Threatening, Hospitalization, Disabling, Other)
  Sender: FDA-Public Use
  Company Number: PL-AUROBINDO-AUR-APL-2017-48301

PATIENT
  Age: 50 Year
  Sex: Female

DRUGS (110)
  1. DOXEPIN [Suspect]
     Active Substance: DOXEPIN
     Indication: DEPRESSED MOOD
     Dosage: ()
  2. DOXEPIN [Suspect]
     Active Substance: DOXEPIN
     Indication: DEPRESSION
     Dosage: ()
  3. TRAMADOL. [Suspect]
     Active Substance: TRAMADOL
     Dosage: TRAMADOL IN COMBINATION WITH MELOXICAM FOR ABOUT TWO YEARS AGO ()
     Route: 048
  4. PERINDOPRIL [Suspect]
     Active Substance: PERINDOPRIL
     Indication: HYPERTENSION
     Dosage: UNK ()
     Route: 048
  5. SERTRALINE [Suspect]
     Active Substance: SERTRALINE HYDROCHLORIDE
     Dosage: 50 MG, QD
     Route: 065
  6. SERTRALINE [Suspect]
     Active Substance: SERTRALINE HYDROCHLORIDE
     Dosage: 50 MG, QD
     Route: 065
  7. SERTRALINE [Suspect]
     Active Substance: SERTRALINE HYDROCHLORIDE
     Dosage: 50 MG, QD
     Route: 065
  8. ESCITALOPRAM [Suspect]
     Active Substance: ESCITALOPRAM OXALATE
     Indication: DEPRESSION
     Dosage: 10 MG, BEFORE SLEEPING
     Route: 048
  9. ESCITALOPRAM [Suspect]
     Active Substance: ESCITALOPRAM OXALATE
     Dosage: ()
     Route: 065
  10. ESCITALOPRAM [Suspect]
     Active Substance: ESCITALOPRAM OXALATE
     Dosage: 10 MG, HS
     Route: 048
  11. BISOPROLOL [Suspect]
     Active Substance: BISOPROLOL
     Indication: PRODUCT USED FOR UNKNOWN INDICATION
     Dosage: UNK ()
     Route: 065
  12. TROSICAM [Suspect]
     Active Substance: MELOXICAM
     Dosage: UNK ()
     Route: 065
  13. CONCOR [Suspect]
     Active Substance: BISOPROLOL FUMARATE
     Indication: SUICIDE ATTEMPT
     Dosage: UNK
     Route: 065
  14. CLARITHROMYCIN. [Suspect]
     Active Substance: CLARITHROMYCIN
     Dosage: ()
     Route: 065
  15. CLARITHROMYCIN. [Suspect]
     Active Substance: CLARITHROMYCIN
     Dosage: TOTAL DRUG DURATION: 2 X 10 DAYS ()
     Route: 048
  16. CLARITHROMYCIN. [Suspect]
     Active Substance: CLARITHROMYCIN
     Dosage: TWO 10 DAY CYCLES. ()
     Route: 048
  17. POLSEN [Suspect]
     Active Substance: ZOLPIDEM TARTRATE
     Indication: DEPRESSION
     Dosage: 10 MG AT BEDTIME
     Route: 065
  18. DOXEPIN [Suspect]
     Active Substance: DOXEPIN
     Dosage: 25 MG, HS
     Route: 048
  19. DOXEPIN [Suspect]
     Active Substance: DOXEPIN
     Dosage: 25 MG, HS
     Route: 048
  20. ZOLPIDEM [Suspect]
     Active Substance: ZOLPIDEM\ZOLPIDEM TARTRATE
     Indication: DEPRESSED MOOD
     Dosage: 10 MILLIGRAM DAILY; AT BEDTIME
     Route: 048
  21. PERINDOPRIL [Concomitant]
     Active Substance: PERINDOPRIL
     Dosage: ()
  22. ATORVASTATIN [Concomitant]
     Active Substance: ATORVASTATIN
     Indication: HYPERCHOLESTEROLAEMIA
     Dosage: ()
  23. TRAMADOL. [Suspect]
     Active Substance: TRAMADOL
     Indication: ARTHRALGIA
     Dosage: B/D ()
     Route: 048
  24. TRAMADOL. [Suspect]
     Active Substance: TRAMADOL
     Dosage: ()
     Route: 065
  25. TRAMADOL. [Suspect]
     Active Substance: TRAMADOL
     Dosage: ()
     Route: 065
  26. SERTRALINE [Suspect]
     Active Substance: SERTRALINE HYDROCHLORIDE
     Dosage: 50 MG, AM (IN THE MORNING)
     Route: 048
  27. ESCITALOPRAM [Suspect]
     Active Substance: ESCITALOPRAM OXALATE
     Indication: INSOMNIA
     Dosage: UNK ()
     Route: 065
  28. ATORVASTATIN [Suspect]
     Active Substance: ATORVASTATIN
     Indication: HYPERCHOLESTEROLAEMIA
     Dosage: UNK (BEDTIME) ()
     Route: 048
  29. ATORVASTATIN [Suspect]
     Active Substance: ATORVASTATIN
     Dosage: UNK (BEDTIME) ()
     Route: 048
  30. TROSICAM [Suspect]
     Active Substance: MELOXICAM
     Indication: OSTEOARTHRITIS
     Dosage: ()
     Route: 065
  31. TROSICAM [Suspect]
     Active Substance: MELOXICAM
     Dosage: TRAMADOL IN COMBINATION WITH MELOXICAM, FOR ABOUT TWO YEARS AGO ()
     Route: 048
  32. CONCOR [Suspect]
     Active Substance: BISOPROLOL FUMARATE
     Dosage: ()
     Route: 065
  33. CLARITHROMYCIN. [Suspect]
     Active Substance: CLARITHROMYCIN
     Dosage: TWO 10 DAY COURSES ()
     Route: 065
  34. CLARITHROMYCIN. [Suspect]
     Active Substance: CLARITHROMYCIN
     Dosage: TWO 10 DAY CYCLES. ()
     Route: 048
  35. ATORIS [Suspect]
     Active Substance: ATORVASTATIN CALCIUM
     Dosage: ()
     Route: 065
  36. DOXEPIN [Suspect]
     Active Substance: DOXEPIN
     Indication: AFFECTIVE DISORDER
     Dosage: 25 MG AT BEDTIME
     Route: 065
  37. DOXEPIN [Suspect]
     Active Substance: DOXEPIN
     Dosage: 25 MG, HS
     Route: 048
  38. ZOLPIDEM [Suspect]
     Active Substance: ZOLPIDEM\ZOLPIDEM TARTRATE
     Dosage: 10 MILLIGRAM DAILY; AT BEDTIME
     Route: 048
  39. MOVALIS [Suspect]
     Active Substance: MELOXICAM
     Indication: OSTEOARTHRITIS
     Dosage: TRAMADOL IN COMBINATION WITH MELOXICAM, FOR ABOUT TWO YEARS AGO ()
     Route: 065
  40. PERINDOPRIL [Concomitant]
     Active Substance: PERINDOPRIL
     Dosage: ()
  41. TRAMADOL. [Suspect]
     Active Substance: TRAMADOL
     Indication: OSTEOARTHRITIS
     Dosage: UNK (BEDTIME), TRAMADOL IN COMBINATION WITH MELOXICAM FOR ABOUT TWO YEARS AGO ()
     Route: 048
  42. TRAMADOL. [Suspect]
     Active Substance: TRAMADOL
     Dosage: ()
  43. TRAMADOL. [Suspect]
     Active Substance: TRAMADOL
     Dosage: ()
     Route: 065
  44. TRAMADOL. [Suspect]
     Active Substance: TRAMADOL
     Dosage: ()
     Route: 065
  45. PERINDOPRIL [Suspect]
     Active Substance: PERINDOPRIL
     Dosage: ()
     Route: 065
  46. SERTRALINE [Suspect]
     Active Substance: SERTRALINE HYDROCHLORIDE
     Indication: DEPRESSED MOOD
     Dosage: 50 MG, OD, (IN THE MORNING)
     Route: 048
  47. ESCITALOPRAM [Suspect]
     Active Substance: ESCITALOPRAM OXALATE
     Dosage: 10 MG, HS
     Route: 048
  48. ESCITALOPRAM [Suspect]
     Active Substance: ESCITALOPRAM OXALATE
     Dosage: DOCTOR SWITCHED THE PATIENT FROM SERTRALINE TO ESCITALOPRAM
     Route: 048
  49. ATORVASTATIN [Suspect]
     Active Substance: ATORVASTATIN
     Dosage: UNK (BEDTIME) ()
     Route: 048
  50. CONCOR [Suspect]
     Active Substance: BISOPROLOL FUMARATE
     Dosage: ()
     Route: 065
  51. CLARITHROMYCIN. [Suspect]
     Active Substance: CLARITHROMYCIN
     Dosage: TWO 10 DAY CYCLES. ()
     Route: 048
  52. ATORIS [Suspect]
     Active Substance: ATORVASTATIN CALCIUM
     Indication: PRODUCT USED FOR UNKNOWN INDICATION
     Dosage: UNK
     Route: 065
  53. ATORIS [Suspect]
     Active Substance: ATORVASTATIN CALCIUM
     Dosage: ()
     Route: 065
  54. POLSEN [Suspect]
     Active Substance: ZOLPIDEM TARTRATE
     Indication: SLEEP DISORDER
     Dosage: 10 MG AT BEDTIME
     Route: 065
  55. ZOLPIDEM [Suspect]
     Active Substance: ZOLPIDEM\ZOLPIDEM TARTRATE
     Indication: SLEEP DISORDER
     Dosage: 10 MILLIGRAM DAILY; AT BEDTIME
     Route: 048
  56. PERINDOPRIL [Concomitant]
     Active Substance: PERINDOPRIL
     Indication: HYPERTENSION
     Dosage: ()
  57. PERINDOPRIL [Suspect]
     Active Substance: PERINDOPRIL
     Dosage: ()
     Route: 065
  58. PERINDOPRIL [Suspect]
     Active Substance: PERINDOPRIL
     Dosage: UNK ()
     Route: 048
  59. SERTRALINE [Suspect]
     Active Substance: SERTRALINE HYDROCHLORIDE
     Dosage: 50 MG, AM (IN THE MORNING)
     Route: 048
  60. ESCITALOPRAM [Suspect]
     Active Substance: ESCITALOPRAM OXALATE
     Dosage: DOCTOR SWITCHED THE PATIENT FROM SERTRALINE TO ESCITALOPRAM
     Route: 048
  61. ESCITALOPRAM [Suspect]
     Active Substance: ESCITALOPRAM OXALATE
     Dosage: 10 MG, HS
     Route: 048
  62. TROSICAM [Suspect]
     Active Substance: MELOXICAM
     Dosage: UNK ()
     Route: 065
  63. TROSICAM [Suspect]
     Active Substance: MELOXICAM
     Dosage: UNK ()
     Route: 065
  64. CLARITHROMYCIN. [Suspect]
     Active Substance: CLARITHROMYCIN
     Indication: TINNITUS
     Dosage: TWO 10 DAY COURSES
     Route: 065
  65. ATORIS [Suspect]
     Active Substance: ATORVASTATIN CALCIUM
     Dosage: ()
     Route: 065
  66. DOXEPIN [Suspect]
     Active Substance: DOXEPIN
     Route: 065
  67. PERINDOPRIL [Suspect]
     Active Substance: PERINDOPRIL
     Indication: SUICIDE ATTEMPT
     Dosage: UNK
     Route: 065
  68. PERINDOPRIL [Suspect]
     Active Substance: PERINDOPRIL
     Dosage: UNK ()
     Route: 048
  69. SERTRALINE [Suspect]
     Active Substance: SERTRALINE HYDROCHLORIDE
     Indication: DEPRESSION
     Dosage: 50 MG IN THE MORNING
     Route: 065
  70. SERTRALINE [Suspect]
     Active Substance: SERTRALINE HYDROCHLORIDE
     Dosage: 50 MG, AM (IN THE MORNING)
     Route: 048
  71. SERTRALINE [Suspect]
     Active Substance: SERTRALINE HYDROCHLORIDE
     Dosage: 50 MG, AM (IN THE MORNING)
     Route: 048
  72. ESCITALOPRAM [Suspect]
     Active Substance: ESCITALOPRAM OXALATE
     Indication: AFFECTIVE DISORDER
     Dosage: UNK
     Route: 065
  73. BISOPROLOL [Suspect]
     Active Substance: BISOPROLOL
     Dosage: UNK ()
     Route: 065
  74. TROSICAM [Suspect]
     Active Substance: MELOXICAM
     Dosage: TRAMADOL IN COMBINATION WITH MELOXICAM, FOR ABOUT TWO YEARS AGO ()
     Route: 048
  75. CONCOR [Suspect]
     Active Substance: BISOPROLOL FUMARATE
     Dosage: ()
     Route: 065
  76. CLARITHROMYCIN. [Suspect]
     Active Substance: CLARITHROMYCIN
     Dosage: B/D ()
     Route: 048
  77. CLARITHROMYCIN. [Suspect]
     Active Substance: CLARITHROMYCIN
     Dosage: UNK (BEDTIME), TWO, 10-DAY TREATMENT CYCLES COURSES ()
     Route: 048
  78. ATORIS [Suspect]
     Active Substance: ATORVASTATIN CALCIUM
     Dosage: ()
     Route: 065
  79. PERINDOPRIL [Suspect]
     Active Substance: PERINDOPRIL
     Dosage: ()
     Route: 065
  80. PERINDOPRIL [Suspect]
     Active Substance: PERINDOPRIL
     Dosage: ()
     Route: 065
  81. ESCITALOPRAM [Suspect]
     Active Substance: ESCITALOPRAM OXALATE
     Dosage: DOCTOR SWITCHED THE PATIENT FROM SERTRALINE TO ESCITALOPRAM
     Route: 065
  82. ATORVASTATIN [Suspect]
     Active Substance: ATORVASTATIN
     Dosage: UNK (BEDTIME) ()
     Route: 048
  83. TROSICAM [Suspect]
     Active Substance: MELOXICAM
     Dosage: UNK ()
     Route: 065
  84. CLARITHROMYCIN. [Suspect]
     Active Substance: CLARITHROMYCIN
     Dosage: ()
     Route: 065
  85. DOXEPIN [Suspect]
     Active Substance: DOXEPIN
     Dosage: 25 MG, OD, AT BED TIME
  86. DOXEPIN [Suspect]
     Active Substance: DOXEPIN
     Dosage: ()
  87. DOXEPIN [Suspect]
     Active Substance: DOXEPIN
     Dosage: 25 MG, HS
     Route: 048
  88. ZOLPIDEM [Suspect]
     Active Substance: ZOLPIDEM\ZOLPIDEM TARTRATE
     Dosage: 10 MILLIGRAM DAILY; AT BEDTIME
     Route: 048
  89. TRAMADOL. [Suspect]
     Active Substance: TRAMADOL
     Dosage: TRAMADOL IN COMBINATION WITH MELOXICAM FOR ABOUT TWO YEARS AGO ()
     Route: 048
  90. TRAMADOL. [Suspect]
     Active Substance: TRAMADOL
     Dosage: TRAMADOL IN COMBINATION WITH MELOXICAM FOR ABOUT TWO YEARS AGO ()
     Route: 065
  91. PERINDOPRIL [Suspect]
     Active Substance: PERINDOPRIL
     Dosage: UNK ()
     Route: 065
  92. SERTRALINE [Suspect]
     Active Substance: SERTRALINE HYDROCHLORIDE
     Dosage: 50 MG, QD
     Route: 065
  93. ESCITALOPRAM [Suspect]
     Active Substance: ESCITALOPRAM OXALATE
     Dosage: 10 MG, HS
     Route: 048
  94. BISOPROLOL [Suspect]
     Active Substance: BISOPROLOL
     Dosage: UNK ()
     Route: 065
  95. CONCOR [Suspect]
     Active Substance: BISOPROLOL FUMARATE
     Dosage: ()
     Route: 065
  96. POLSEN [Suspect]
     Active Substance: ZOLPIDEM TARTRATE
     Dosage: 10 MG AT BEDTIME
     Route: 048
  97. POLSEN [Suspect]
     Active Substance: ZOLPIDEM TARTRATE
     Dosage: 10 MG AT BEDTIME
     Route: 048
  98. DOXEPIN [Suspect]
     Active Substance: DOXEPIN
     Dosage: 25 MG AT BEDTIME
     Route: 065
  99. TRAMADOL. [Suspect]
     Active Substance: TRAMADOL
     Dosage: TRAMADOL IN COMBINATION WITH MELOXICAM FOR ABOUT TWO YEARS AGO ()
     Route: 048
  100. TRAMADOL. [Suspect]
     Active Substance: TRAMADOL
     Dosage: ()
     Route: 065
  101. PERINDOPRIL [Suspect]
     Active Substance: PERINDOPRIL
     Dosage: UNK ()
     Route: 048
  102. ESCITALOPRAM [Suspect]
     Active Substance: ESCITALOPRAM OXALATE
     Dosage: 10 MG, HS
     Route: 048
  103. ESCITALOPRAM [Suspect]
     Active Substance: ESCITALOPRAM OXALATE
     Dosage: DOCTOR SWITCHED THE PATIENT FROM SERTRALINE TO ESCITALOPRAM
     Route: 048
  104. ATORVASTATIN [Suspect]
     Active Substance: ATORVASTATIN
     Dosage: ()
     Route: 065
  105. BISOPROLOL [Suspect]
     Active Substance: BISOPROLOL
     Indication: PRODUCT USED FOR UNKNOWN INDICATION
     Dosage: UNK
     Route: 065
  106. TROSICAM [Suspect]
     Active Substance: MELOXICAM
     Indication: ARTHRALGIA
     Dosage: UNK
     Route: 065
  107. CONCOR [Suspect]
     Active Substance: BISOPROLOL FUMARATE
     Dosage: UNK ()
     Route: 065
  108. CLARITHROMYCIN. [Suspect]
     Active Substance: CLARITHROMYCIN
     Indication: PRODUCT USED FOR UNKNOWN INDICATION
     Dosage: ()
     Route: 065
  109. CLARITHROMYCIN. [Suspect]
     Active Substance: CLARITHROMYCIN
     Dosage: ()
     Route: 065
  110. POLSEN [Suspect]
     Active Substance: ZOLPIDEM TARTRATE
     Dosage: 10 MG AT BEDTIME
     Route: 048

REACTIONS (15)
  - Overdose [Recovered/Resolved]
  - Condition aggravated [Recovering/Resolving]
  - Intentional product misuse [Recovering/Resolving]
  - Tinnitus [Recovered/Resolved]
  - Suicide attempt [Recovered/Resolved]
  - Loss of consciousness [Recovered/Resolved]
  - Intentional overdose [Unknown]
  - Depression [Recovering/Resolving]
  - Affective disorder [Recovering/Resolving]
  - Loss of personal independence in daily activities [Recovered/Resolved]
  - Product use in unapproved indication [Recovered/Resolved]
  - Impaired work ability [Recovered/Resolved]
  - Insomnia [Recovering/Resolving]
  - Drug abuse [Unknown]
  - Drug ineffective [Unknown]
